FAERS Safety Report 4836573-4 (Version None)
Quarter: 2005Q4

REPORT INFORMATION
  Report Type: 
  Country: None (occurrence: None)
  Receive Date: 20051121
  Receipt Date: 20051108
  Transmission Date: 20060501
  Serious: Yes (Other)
  Sender: FDA-Public Use
  Company Number: 2005152430

PATIENT
  Sex: Female
  Weight: 94.3482 kg

DRUGS (4)
  1. CELEBREX [Suspect]
     Indication: BACK PAIN
     Dosage: 200 MG (200 MG, 1 IN 1 D)
  2. IBUPROFEN [Suspect]
     Indication: BACK PAIN
     Dosage: 1600 MG (800 MG, 2 IN 1 D)
  3. ALL OTHER THERAPEUTIC PRODUCTS (ALL OTHER THERAPEUTIC PRODUCTS) [Concomitant]
  4. LOVASTATINN (LOVASTATIN) [Concomitant]

REACTIONS (5)
  - ANKLE FRACTURE [None]
  - ARTHRITIS [None]
  - BODY HEIGHT DECREASED [None]
  - HYPERTENSION [None]
  - MUSCLE SPASMS [None]
